FAERS Safety Report 4948972-0 (Version None)
Quarter: 2006Q1

REPORT INFORMATION
  Report Type: 
  Country: None (occurrence: None)
  Receive Date: 20060321
  Receipt Date: 20060307
  Transmission Date: 20060701
  Serious: Yes (Hospitalization)
  Sender: FDA-Public Use
  Company Number: US-BRISTOL-MYERS SQUIBB COMPANY-13306204

PATIENT
  Age: 78 Year
  Sex: Male
  Weight: 60 kg

DRUGS (4)
  1. CETUXIMAB [Suspect]
     Indication: NEOPLASM MALIGNANT
     Dosage: INI 712 MG 02-DEC-2005/445 MG 09-DEC-2005TO23-DEC-2005/448 MG 28-DEC-2005TO22-FEB-2006/INTERRUPTED.
     Route: 042
     Dates: start: 20060222, end: 20060222
  2. CARBOPLATIN [Suspect]
     Indication: NEOPLASM MALIGNANT
     Dosage: AUC 1.  INITIATED 28-DEC-2005/INTERRUPTED DURING HOSPITALIZATION.
     Route: 042
     Dates: start: 20060222, end: 20060222
  3. PACLITAXEL [Suspect]
     Indication: NEOPLASM MALIGNANT
     Dosage: INITIATED 28-DEC-2005; INTERRUPTED DURING HOSPITALIZATION.
     Route: 042
     Dates: start: 20060222, end: 20060222
  4. RADIATION THERAPY [Suspect]
     Indication: NEOPLASM MALIGNANT
     Dosage: 180 CGY DAILY EXCEPT W/E AND HOLIDAYS/INIT. 28-DEC-2005; INTERR. AS DESCRIBED IN NARRATIVE.
     Dates: start: 20060221

REACTIONS (6)
  - BACTERAEMIA [None]
  - COLITIS ISCHAEMIC [None]
  - HAEMOGLOBIN DECREASED [None]
  - LOSS OF CONSCIOUSNESS [None]
  - MENTAL STATUS CHANGES [None]
  - PNEUMONIA [None]
